FAERS Safety Report 20966703 (Version 1)
Quarter: 2022Q2

REPORT INFORMATION
  Report Type: Spontaneous
  Country: PL (occurrence: PL)
  Receive Date: 20220616
  Receipt Date: 20220616
  Transmission Date: 20220720
  Serious: Yes (Other)
  Sender: FDA-Public Use
  Company Number: PL-MYLANLABS-2022M1039282

PATIENT
  Age: 59 Year
  Sex: Male

DRUGS (21)
  1. GLICLAZIDE [Suspect]
     Active Substance: GLICLAZIDE
     Indication: Diabetes mellitus
     Dosage: 30 MILLIGRAM, QD
  2. VALSARTAN [Suspect]
     Active Substance: VALSARTAN
     Indication: Hypertension
     Dosage: 160 MILLIGRAM, QD (160 MILLIGRAM DAILY)
  3. AMITRIPTYLINE [Suspect]
     Active Substance: AMITRIPTYLINE
     Indication: Polyneuropathy
     Dosage: 120 MILLIGRAM, QD
  4. CYCLOSPORINE [Suspect]
     Active Substance: CYCLOSPORINE
     Indication: Dermatitis atopic
     Dosage: UNK
  5. HYDROCHLOROTHIAZIDE [Suspect]
     Active Substance: HYDROCHLOROTHIAZIDE
     Indication: Hypertension
     Dosage: 25 MILLIGRAM, QD
  6. DILTIAZEM [Suspect]
     Active Substance: DILTIAZEM
     Indication: Hypertension
     Dosage: 120 MILLIGRAM, QD
  7. FLUTICASONE [Concomitant]
     Active Substance: FLUTICASONE
     Indication: Asthma
     Dosage: UNK
  8. THEOPHYLLINE [Concomitant]
     Active Substance: THEOPHYLLINE
     Indication: Asthma
     Dosage: 250 MILLIGRAM, QD, 250 MILLIGRAM DAILY
  9. CETIRIZINE [Concomitant]
     Active Substance: CETIRIZINE HYDROCHLORIDE
     Indication: Asthma
     Dosage: 5 MILLIGRAM, QD
  10. GLICLAZIDE [Concomitant]
     Active Substance: GLICLAZIDE
     Indication: Type 2 diabetes mellitus
     Dosage: 30 MILLIGRAM, QD
  11. AZATHIOPRINE [Concomitant]
     Active Substance: AZATHIOPRINE
     Indication: Dermatitis atopic
     Dosage: UNK
  12. FENOTEROL [Concomitant]
     Active Substance: FENOTEROL
     Indication: Asthma
     Dosage: UNK UNK, PRN (INHALATION IF NECESSARY)
  13. LEDIPASVIR\SOFOSBUVIR [Concomitant]
     Active Substance: LEDIPASVIR\SOFOSBUVIR
     Indication: Hepatitis C
     Dosage: UNK
     Dates: start: 2017
  14. PREDNISOLONE [Concomitant]
     Active Substance: PREDNISOLONE
     Indication: Dermatitis atopic
     Dosage: UNK
  15. CLIOQUINOL [Concomitant]
     Active Substance: CLIOQUINOL
     Indication: Dermatitis atopic
     Dosage: UNK
  16. FLUOCINOLONE [Concomitant]
     Active Substance: FLUOCINOLONE
     Indication: Dermatitis atopic
     Dosage: UNK
  17. SALMETEROL [Concomitant]
     Active Substance: SALMETEROL
     Indication: Asthma
     Dosage: UNK, BID, INHALATIONS TWICE DAILY
  18. FLUMETHASONE [Concomitant]
     Active Substance: FLUMETHASONE
     Indication: Dermatitis atopic
     Dosage: UNK
  19. CLOBETASOL [Concomitant]
     Active Substance: CLOBETASOL
     Indication: Dermatitis atopic
     Dosage: UNK
     Route: 061
  20. METHYLPREDNISOLONE [Concomitant]
     Active Substance: METHYLPREDNISOLONE
     Indication: Dermatitis atopic
     Dosage: 4 MILLIGRAM, QD; 4 MILLIGRAM DAILY
  21. INSULIN LISPRO PROTAMINE SUSPENSION [Concomitant]
     Indication: Type 2 diabetes mellitus
     Dosage: SUSPENSION

REACTIONS (4)
  - Acute kidney injury [Unknown]
  - Hypertension [Unknown]
  - Drug ineffective [Unknown]
  - Hypoglycaemia [Unknown]
